FAERS Safety Report 13353438 (Version 1)
Quarter: 2017Q1

REPORT INFORMATION
  Report Type: Spontaneous
  Country: JP (occurrence: JP)
  Receive Date: 20170321
  Receipt Date: 20170321
  Transmission Date: 20170429
  Serious: Yes (Death, Other)
  Sender: FDA-Public Use
  Company Number: JP-009507513-1703JPN001593J

PATIENT
  Sex: Female
  Weight: 49.1 kg

DRUGS (5)
  1. DENOSINE [Concomitant]
     Active Substance: GANCICLOVIR
     Indication: VIRAL INFECTION
     Dosage: 120 MG, QD
     Route: 051
     Dates: start: 20161216, end: 20170102
  2. ZYVOX [Concomitant]
     Active Substance: LINEZOLID
     Indication: BACTERIAL INFECTION
     Dosage: 600 MG, BID
     Route: 051
     Dates: start: 20161213, end: 20161227
  3. CRAVIT [Concomitant]
     Active Substance: LEVOFLOXACIN
     Indication: BACTERIAL INFECTION
     Dosage: 250 MG, QD
     Route: 051
     Dates: start: 20161213, end: 20161227
  4. CANCIDAS [Suspect]
     Active Substance: CASPOFUNGIN ACETATE
     Indication: FEBRILE NEUTROPENIA
     Dosage: 50 MG, QD
     Route: 041
     Dates: start: 20161202, end: 20170101
  5. BACTRAMIN [Concomitant]
     Active Substance: SULFAMETHOXAZOLE\TRIMETHOPRIM
     Indication: PNEUMOCYSTIS JIROVECII PNEUMONIA
     Dosage: 15 ML, TID
     Route: 051
     Dates: start: 20161205, end: 20161225

REACTIONS (1)
  - Death [Fatal]
